FAERS Safety Report 4850017-8 (Version None)
Quarter: 2005Q4

REPORT INFORMATION
  Report Type: 
  Country: None (occurrence: None)
  Receive Date: 20051123
  Receipt Date: 20041215
  Transmission Date: 20060501
  Serious: Yes (Other)
  Sender: FDA-Public Use
  Company Number: 2004100662

PATIENT
  Age: 52 Year
  Sex: Male
  Weight: 63.5036 kg

DRUGS (5)
  1. LIPITOR [Suspect]
     Indication: BLOOD CHOLESTEROL
     Dosage: 20 MG (20 MG, 1 IN 1 D), ORAL
     Route: 048
     Dates: start: 20030101
  2. BEXTRA [Suspect]
     Indication: BACK DISORDER
     Dosage: (PRN), ORAL
     Route: 048
     Dates: start: 20040501
  3. METHYLPREDNISOLONE [Suspect]
     Indication: BACK DISORDER
  4. PARACETAMOL (PARACETAMOL) [Concomitant]
  5. ASPIRIN [Concomitant]

REACTIONS (6)
  - BACK PAIN [None]
  - BED REST [None]
  - BLOOD PRESSURE INCREASED [None]
  - FOOD POISONING [None]
  - GASTROENTERITIS VIRAL [None]
  - NEUROLOGICAL SYMPTOM [None]
